FAERS Safety Report 12147916 (Version 4)
Quarter: 2016Q2

REPORT INFORMATION
  Report Type: Report from Study
  Country: US (occurrence: US)
  Receive Date: 20160304
  Receipt Date: 20160510
  Transmission Date: 20160815
  Serious: Yes (Hospitalization, Other)
  Sender: FDA-Public Use
  Company Number: US-UCBSA-2016006371

PATIENT
  Age: 12 Year
  Sex: Female
  Weight: 34 kg

DRUGS (4)
  1. METHOTREXATE [Concomitant]
     Active Substance: METHOTREXATE
     Indication: JUVENILE IDIOPATHIC ARTHRITIS
     Dosage: 0.6 ML, WEEKLY (QW)
     Route: 058
     Dates: start: 200902, end: 20150714
  2. METHOTREXATE [Concomitant]
     Active Substance: METHOTREXATE
     Dosage: 0.5 ML, WEEKLY (QW)
     Route: 058
     Dates: start: 20150715
  3. MULTIVITAMINS [Concomitant]
     Active Substance: VITAMINS
     Indication: NUTRITIONAL SUPPLEMENTATION
     Dosage: 1 DF, ONCE DAILY (QD)
     Route: 048
  4. CERTOLIZUMAB PEGOL JIA [Suspect]
     Active Substance: CERTOLIZUMAB PEGOL
     Indication: JUVENILE IDIOPATHIC ARTHRITIS
     Dosage: 0.25 ML, EV 2 WEEKS(QOW)
     Route: 058
     Dates: start: 20130508, end: 20160224

REACTIONS (2)
  - Appendicitis perforated [Recovered/Resolved]
  - Ileus [Recovered/Resolved]

NARRATIVE: CASE EVENT DATE: 20160218
